FAERS Safety Report 12677313 (Version 2)
Quarter: 2016Q3

REPORT INFORMATION
  Report Type: Spontaneous
  Country: BR (occurrence: BR)
  Receive Date: 20160823
  Receipt Date: 20160902
  Transmission Date: 20161109
  Serious: Yes (Other)
  Sender: FDA-Public Use
  Company Number: BR-PFIZER INC-2016395650

PATIENT
  Sex: Female

DRUGS (1)
  1. FRONTAL XR [Suspect]
     Active Substance: ALPRAZOLAM
     Dosage: UNK
     Dates: end: 201608

REACTIONS (4)
  - Headache [Not Recovered/Not Resolved]
  - Drug dependence [Not Recovered/Not Resolved]
  - Delirium [Not Recovered/Not Resolved]
  - Tremor [Not Recovered/Not Resolved]

NARRATIVE: CASE EVENT DATE: 201608
